FAERS Safety Report 7608987-0 (Version None)
Quarter: 2011Q3

REPORT INFORMATION
  Report Type: 
  Country: None (occurrence: None)
  Receive Date: 20110707
  Receipt Date: 20110621
  Transmission Date: 20111222
  Serious: Yes (Life-Threatening, Hospitalization, Other)
  Sender: FDA-Public Use
  Company Number: 2011MA007882

PATIENT
  Age: 19 Year
  Sex: Male

DRUGS (1)
  1. FEVERALL [Suspect]
     Indication: OVERDOSE

REACTIONS (16)
  - CONTINUOUS HAEMODIAFILTRATION [None]
  - MYDRIASIS [None]
  - ALANINE AMINOTRANSFERASE INCREASED [None]
  - ASPARTATE AMINOTRANSFERASE INCREASED [None]
  - HYPOTENSION [None]
  - BLOOD PRESSURE DIASTOLIC DECREASED [None]
  - LACTIC ACIDOSIS [None]
  - LACTATE PYRUVATE RATIO INCREASED [None]
  - OCULAR VASCULAR DISORDER [None]
  - BLOOD GLUCOSE INCREASED [None]
  - ELECTROCARDIOGRAM QRS COMPLEX PROLONGED [None]
  - HYPERTRANSAMINASAEMIA [None]
  - COMA [None]
  - TOXICITY TO VARIOUS AGENTS [None]
  - BODY TEMPERATURE DECREASED [None]
  - INTENTIONAL OVERDOSE [None]
